FAERS Safety Report 12549647 (Version 1)
Quarter: 2016Q3

REPORT INFORMATION
  Report Type: Report from Study
  Country: US (occurrence: US)
  Receive Date: 20160712
  Receipt Date: 20160712
  Transmission Date: 20161109
  Serious: Yes (Hospitalization)
  Sender: FDA-Public Use
  Company Number: US-BIOGEN-2016BI00253067

PATIENT
  Age: 37 Year
  Sex: Female

DRUGS (1)
  1. TYSABRI [Suspect]
     Active Substance: NATALIZUMAB
     Indication: MULTIPLE SCLEROSIS
     Dosage: INFUSED OVER 1 HOUR
     Route: 042
     Dates: start: 20150603, end: 20160325

REACTIONS (4)
  - Hypophagia [Unknown]
  - Weight decreased [Unknown]
  - Multiple sclerosis relapse [Recovered/Resolved]
  - Progressive multiple sclerosis [Unknown]

NARRATIVE: CASE EVENT DATE: 201606
